FAERS Safety Report 24017078 (Version 1)
Quarter: 2024Q2

REPORT INFORMATION
  Report Type: Report from Study
  Country: US (occurrence: US)
  Receive Date: 20240626
  Receipt Date: 20240626
  Transmission Date: 20240716
  Serious: Yes (Other)
  Sender: FDA-Public Use
  Company Number: US-JNJFOC-20240649541

PATIENT
  Age: 64 Year
  Sex: Male

DRUGS (1)
  1. CILTACABTAGENE AUTOLEUCEL [Suspect]
     Active Substance: CILTACABTAGENE AUTOLEUCEL
     Indication: Plasma cell myeloma
     Dosage: INTERVAL FROM INFUSION TO DIAGNOSIS OF THE SUBSEQUENT NEOPLASM: 11 MONTH(S) 5 DAY(S)
     Route: 065

REACTIONS (1)
  - Malignant genitourinary tract neoplasm [Unknown]
